FAERS Safety Report 9939809 (Version 1)
Quarter: 2014Q1

REPORT INFORMATION
  Report Type: Report from Study
  Country: US (occurrence: US)
  Receive Date: 20140303
  Receipt Date: 20140303
  Transmission Date: 20141002
  Serious: No
  Sender: FDA-Public Use
  Company Number: US-ABBVIE-13P-163-1037873-00

PATIENT
  Age: 30 Year
  Sex: Female

DRUGS (15)
  1. HUMIRA [Suspect]
     Indication: COLITIS ULCERATIVE
     Dosage: LOADING DOSE ON 14 JAN 2013
     Dates: start: 20121231
  2. AMITRIPTYLINE [Concomitant]
     Indication: INSOMNIA
  3. PENTASA [Concomitant]
     Indication: COLITIS ULCERATIVE
  4. CLARITIN [Concomitant]
     Indication: HYPERSENSITIVITY
  5. IRON [Concomitant]
     Indication: ANAEMIA
     Dosage: 1-3 TABS A DAY
  6. FIORICET [Concomitant]
     Indication: PAIN
     Dosage: 50MG UP TO 325MG
  7. GEODON [Concomitant]
     Indication: AGORAPHOBIA
     Dosage: 2-80MG TABS ONCE A DAY AND 1-60MG TAB ONCE A DAY
  8. HYOSCYAMINE SULFATE [Concomitant]
     Indication: COLITIS ULCERATIVE
  9. LEVOTHYROXINE [Concomitant]
     Indication: HYPOTHYROIDISM
  10. LIALDA [Concomitant]
     Indication: COLITIS ULCERATIVE
  11. LOPRESSOR [Concomitant]
     Indication: HYPERTENSION
  12. PREDNISONE [Concomitant]
     Indication: COLITIS ULCERATIVE
  13. BIRTH CONTROL PILL [Concomitant]
     Indication: PRODUCT USED FOR UNKNOWN INDICATION
  14. TOPOMAX [Concomitant]
     Indication: MIGRAINE
  15. ZANAFLEX [Concomitant]
     Indication: INTERVERTEBRAL DISC DEGENERATION
     Dosage: 1MG-3MG A DAY

REACTIONS (4)
  - Blood potassium decreased [Unknown]
  - Injection site pain [Recovered/Resolved]
  - Injection site pain [Recovered/Resolved]
  - Pleurisy [Unknown]
